FAERS Safety Report 10911174 (Version 2)
Quarter: 2015Q2

REPORT INFORMATION
  Report Type: Spontaneous
  Country: US (occurrence: US)
  Receive Date: 20150312
  Receipt Date: 20150416
  Transmission Date: 20150821
  Serious: Yes (Hospitalization, Other)
  Sender: FDA-Public Use
  Company Number: US-ALLERGAN-1504054US

PATIENT
  Age: 68 Year
  Sex: Female

DRUGS (7)
  1. NEXIUM [Concomitant]
     Active Substance: ESOMEPRAZOLE MAGNESIUM
     Dosage: UNK
  2. URIBEL [Concomitant]
     Active Substance: HYOSCYAMINE SULFATE\METHENAMINE\METHYLENE BLUE\PHENYL SALICYLATE\SODIUM PHOSPHATE, MONOBASIC, MONOHYDRATE
     Indication: MUSCLE SPASMS
     Dosage: UNK
  3. RESTASIS [Suspect]
     Active Substance: CYCLOSPORINE
     Indication: SJOGREN^S SYNDROME
     Dosage: 2 GTT, BID
     Route: 047
     Dates: start: 2006
  4. REFRESH TEARS [Suspect]
     Active Substance: CARBOXYMETHYLCELLULOSE SODIUM
     Indication: SJOGREN^S SYNDROME
     Dosage: 1-2 TIMES A DAY
     Route: 047
  5. MACRODANTIN [Concomitant]
     Active Substance: NITROFURANTOIN
     Dosage: UNK
     Dates: start: 201502
  6. ELMIRON [Concomitant]
     Active Substance: PENTOSAN POLYSULFATE SODIUM
     Indication: CYSTITIS INTERSTITIAL
     Dosage: UNK
  7. PLAQUENIL [Concomitant]
     Active Substance: HYDROXYCHLOROQUINE SULFATE
     Dosage: UNK

REACTIONS (15)
  - Systemic lupus erythematosus [Unknown]
  - Eye irritation [Unknown]
  - Amyloidosis [Recovered/Resolved]
  - Rheumatoid arthritis [Unknown]
  - Extranodal marginal zone B-cell lymphoma (MALT type) [Unknown]
  - Mammogram abnormal [Unknown]
  - Breast disorder [Unknown]
  - Ultrasound scan abnormal [Unknown]
  - Dry eye [Not Recovered/Not Resolved]
  - Amyloidosis [Unknown]
  - Dysphonia [Unknown]
  - Ocular hyperaemia [Unknown]
  - Off label use [Unknown]
  - Eye discharge [Not Recovered/Not Resolved]
  - Eye pain [Unknown]

NARRATIVE: CASE EVENT DATE: 2005
